FAERS Safety Report 4913627-5 (Version None)
Quarter: 2006Q1

REPORT INFORMATION
  Report Type: 
  Country: None (occurrence: None)
  Receive Date: 20060216
  Receipt Date: 20060202
  Transmission Date: 20060701
  Serious: Yes (Hospitalization)
  Sender: FDA-Public Use
  Company Number: US-AMGEN-US164686

PATIENT
  Sex: Male
  Weight: 84.4 kg

DRUGS (7)
  1. EPOGEN [Suspect]
     Indication: RENAL FAILURE CHRONIC
     Route: 058
     Dates: start: 20030101
  2. TOPROL-XL [Concomitant]
  3. DIOVAN [Concomitant]
  4. PROTONIX [Concomitant]
  5. COZAAR [Concomitant]
  6. ALLOPURINOL [Concomitant]
  7. ZETIA [Concomitant]

REACTIONS (3)
  - HAEMODIALYSIS [None]
  - NEPHROGENIC ANAEMIA [None]
  - THERAPEUTIC RESPONSE DECREASED [None]
